FAERS Safety Report 13836177 (Version 3)
Quarter: 2017Q3

REPORT INFORMATION
  Report Type: Spontaneous
  Country: TR (occurrence: TR)
  Receive Date: 20170804
  Receipt Date: 20170818
  Transmission Date: 20171127
  Serious: Yes (Hospitalization, Other)
  Sender: FDA-Public Use
  Company Number: TR-SA-2017SA135321

PATIENT
  Age: 55 Year
  Sex: Female

DRUGS (19)
  1. ATROPINE. [Suspect]
     Active Substance: ATROPINE
     Route: 065
  2. RANITIDINE HYDROCHLORIDE. [Suspect]
     Active Substance: RANITIDINE HYDROCHLORIDE
     Route: 042
  3. PROPOFOL. [Suspect]
     Active Substance: PROPOFOL
     Indication: GENERAL ANAESTHESIA
     Route: 065
  4. TRAMADOL. [Concomitant]
     Active Substance: TRAMADOL
     Indication: PAIN
     Route: 065
  5. MIDAZOLAM [Suspect]
     Active Substance: MIDAZOLAM HYDROCHLORIDE
     Indication: PREMEDICATION
     Route: 065
  6. TRAMADOL. [Concomitant]
     Active Substance: TRAMADOL
     Indication: PAIN
     Route: 030
  7. FENTANYL. [Concomitant]
     Active Substance: FENTANYL
     Indication: GENERAL ANAESTHESIA
     Route: 065
  8. ENOXAPARIN [Concomitant]
     Active Substance: ENOXAPARIN
     Route: 058
  9. PARACETAMOL [Concomitant]
     Active Substance: ACETAMINOPHEN
     Indication: PAIN
     Route: 042
  10. SEVOFLURANE. [Concomitant]
     Active Substance: SEVOFLURANE
     Indication: GENERAL ANAESTHESIA
     Dosage: 1/100
     Route: 065
  11. TENOXICAM [Concomitant]
     Active Substance: TENOXICAM
     Indication: PAIN
     Route: 042
  12. REMIFENTANIL [Concomitant]
     Active Substance: REMIFENTANIL
     Indication: GENERAL ANAESTHESIA
     Dosage: EVERY 1 [HOURS]; 40 CC SF 10 ML/ HOUR BY DILUTING
     Route: 065
  13. VECURONIUM [Concomitant]
     Active Substance: VECURONIUM BROMIDE
     Indication: GENERAL ANAESTHESIA
     Route: 065
  14. DEXKETOPROFEN TROMETAMOL [Concomitant]
     Active Substance: DEXKETOPROFEN TROMETAMOL
     Route: 042
  15. CEFAZOLIN [Concomitant]
     Active Substance: CEFAZOLIN
     Route: 042
  16. OXYGEN. [Concomitant]
     Active Substance: OXYGEN
     Indication: GENERAL ANAESTHESIA
     Dosage: 3 LITERS / MIN
     Route: 065
  17. VECURONIUM [Concomitant]
     Active Substance: VECURONIUM BROMIDE
     Indication: GENERAL ANAESTHESIA
     Dosage: EVERY 45 [MINUTES]
     Route: 065
  18. NEOSTIGMINE [Concomitant]
     Active Substance: NEOSTIGMINE
     Route: 065
  19. CEFAZOLIN [Concomitant]
     Active Substance: CEFAZOLIN
     Route: 042

REACTIONS (6)
  - Nausea [Recovered/Resolved]
  - Vomiting [Recovered/Resolved]
  - Blindness [Recovering/Resolving]
  - Open angle glaucoma [Recovered/Resolved]
  - Pupils unequal [Recovered/Resolved]
  - Headache [Recovered/Resolved]
